FAERS Safety Report 20393435 (Version 1)
Quarter: 2022Q1

REPORT INFORMATION
  Report Type: Spontaneous
  Country: US (occurrence: None)
  Receive Date: 20220128
  Receipt Date: 20220128
  Transmission Date: 20220423
  Serious: Yes (Other)
  Sender: FDA-Public Use
  Company Number: None

PATIENT
  Age: 71 Year
  Sex: Male
  Weight: 94.3 kg

DRUGS (3)
  1. BARICITINIB [Suspect]
     Active Substance: BARICITINIB
     Indication: COVID-19
     Dates: start: 20220115, end: 20220127
  2. dexamethasone 6 mg q24h [Concomitant]
     Dates: start: 20220115, end: 20220127
  3. ASA EC 81 mg [Concomitant]
     Dates: start: 20220114, end: 20220127

REACTIONS (1)
  - Gastrointestinal perforation [None]

NARRATIVE: CASE EVENT DATE: 20220127
